FAERS Safety Report 25821841 (Version 1)
Quarter: 2025Q3

REPORT INFORMATION
  Report Type: Spontaneous
  Country: US (occurrence: US)
  Receive Date: 20250919
  Receipt Date: 20250919
  Transmission Date: 20251021
  Serious: No
  Sender: SUNOVION
  Company Number: US-SMPA-2025SPA011716

PATIENT
  Age: 90 Year
  Sex: Female

DRUGS (3)
  1. GEMTESA [Suspect]
     Active Substance: VIBEGRON
     Indication: Bladder disorder
     Route: 048
  2. GEMTESA [Suspect]
     Active Substance: VIBEGRON
     Indication: Urinary incontinence
  3. ENALAPRIL [Concomitant]
     Active Substance: ENALAPRIL
     Indication: Blood pressure measurement
     Dosage: 5 MG, ONE A DAY

REACTIONS (2)
  - Drug effect less than expected [Unknown]
  - Product use issue [Unknown]
